FAERS Safety Report 5847895-2 (Version None)
Quarter: 2008Q3

REPORT INFORMATION
  Report Type: 
  Country: None (occurrence: None)
  Receive Date: 20080814
  Receipt Date: 20080814
  Transmission Date: 20090109
  Serious: Yes (Life-Threatening, Disabling, Other)
  Sender: FDA-Public Use
  Company Number: None

PATIENT
  Age: 65 Year
  Sex: Female
  Weight: 92.9874 kg

DRUGS (4)
  1. ZYFLO [Suspect]
     Indication: ASTHMA
     Dosage: TWICE A DAY TOP
     Route: 061
     Dates: start: 20080212, end: 20080216
  2. ZYFLO [Suspect]
     Indication: LUNG DISORDER
     Dosage: TWICE A DAY TOP
     Route: 061
     Dates: start: 20080212, end: 20080216
  3. ZYFLO [Suspect]
     Indication: ASTHMA
     Dosage: TWICE A DAY TOP
     Route: 061
     Dates: start: 20080221, end: 20080224
  4. ZYFLO [Suspect]
     Indication: LUNG DISORDER
     Dosage: TWICE A DAY TOP
     Route: 061
     Dates: start: 20080221, end: 20080224

REACTIONS (5)
  - ASTHENIA [None]
  - COUGH [None]
  - LUNG DISORDER [None]
  - MALAISE [None]
  - PYREXIA [None]
